FAERS Safety Report 8333942-5 (Version None)
Quarter: 2012Q2

REPORT INFORMATION
  Report Type: 
  Country: None (occurrence: None)
  Receive Date: 20120503
  Receipt Date: 20120427
  Transmission Date: 20120825
  Serious: Yes (Death, Other)
  Sender: FDA-Public Use
  Company Number: GB-TEVA-329564ISR

PATIENT
  Age: 82 Year
  Sex: Female
  Weight: 96 kg

DRUGS (1)
  1. VENLAFAXINE [Suspect]
     Indication: DEPRESSION

REACTIONS (5)
  - CONDITION AGGRAVATED [None]
  - HYPOPHAGIA [None]
  - SOCIAL AVOIDANT BEHAVIOUR [None]
  - SEPSIS [None]
  - GENERAL PHYSICAL HEALTH DETERIORATION [None]
